FAERS Safety Report 7365142-X (Version None)
Quarter: 2011Q1

REPORT INFORMATION
  Report Type: 
  Country: None (occurrence: None)
  Receive Date: 20110321
  Receipt Date: 20110315
  Transmission Date: 20110831
  Serious: Yes (Hospitalization, Other)
  Sender: FDA-Public Use
  Company Number: TW-ABBOTT-11P-153-0712172-00

PATIENT
  Age: 21 Year
  Sex: Female

DRUGS (3)
  1. RISPERIDONE [Suspect]
     Indication: SCHIZOAFFECTIVE DISORDER
     Dosage: DAILY
  2. AMISULPRIDE [Suspect]
     Indication: SCHIZOAFFECTIVE DISORDER
     Dosage: 100 MG DAILY, TITRATED UP TO 600 MG/DAY
  3. VALPROIC ACID [Suspect]
     Indication: SCHIZOAFFECTIVE DISORDER
     Dosage: 500 MG DAILY, TITRATED UP TO 750 MG/DAY MG/ DAY

REACTIONS (13)
  - NAUSEA [None]
  - SOMNOLENCE [None]
  - FLIGHT OF IDEAS [None]
  - LOGORRHOEA [None]
  - HYPERAMMONAEMIA [None]
  - VOMITING [None]
  - DISORIENTATION [None]
  - AMMONIA INCREASED [None]
  - AMENORRHOEA [None]
  - ATAXIA [None]
  - MANIA [None]
  - ELEVATED MOOD [None]
  - AFFECTIVE DISORDER [None]
